FAERS Safety Report 6688471-1 (Version None)
Quarter: 2010Q2

REPORT INFORMATION
  Report Type: 
  Country: None (occurrence: None)
  Receive Date: 20100420
  Receipt Date: 20100414
  Transmission Date: 20101027
  Serious: Yes (Hospitalization)
  Sender: FDA-Public Use
  Company Number: FR-WYE-G05955810

PATIENT
  Sex: Male
  Weight: 14.5 kg

DRUGS (3)
  1. ADVIL LIQUI-GELS [Suspect]
     Indication: NASOPHARYNGITIS
     Route: 048
     Dates: start: 20091219, end: 20091223
  2. CEFPODOXIME PROXETIL [Concomitant]
     Indication: OTITIS MEDIA ACUTE
     Dosage: UNKNOWN
     Route: 048
     Dates: start: 20091219, end: 20091201
  3. DOLIPRANE [Concomitant]
     Indication: NASOPHARYNGITIS
     Dosage: UNKNOWN
     Route: 048
     Dates: start: 20091219, end: 20091201

REACTIONS (4)
  - CONDITION AGGRAVATED [None]
  - NASOPHARYNGITIS [None]
  - OTITIS MEDIA ACUTE [None]
  - TONSILLITIS [None]
